FAERS Safety Report 21141799 (Version 1)
Quarter: 2022Q3

REPORT INFORMATION
  Report Type: Spontaneous
  Country: US (occurrence: None)
  Receive Date: 20220727
  Receipt Date: 20220727
  Transmission Date: 20221027
  Serious: No
  Sender: FDA-Public Use
  Company Number: None

PATIENT
  Age: 47 Year
  Sex: Female
  Weight: 112.5 kg

DRUGS (2)
  1. HYDROCODONE BITARTRATE AND ACETAMINOPHEN [Suspect]
     Active Substance: ACETAMINOPHEN\HYDROCODONE BITARTRATE
     Indication: Pain
     Dosage: OTHER QUANTITY : 1 TABLET(S);?FREQUENCY : EVERY 4 HOURS;?
     Route: 048
     Dates: start: 20220726, end: 20220727
  2. Liothyronine 25mcg hypothyroidism [Concomitant]

REACTIONS (14)
  - Product substitution issue [None]
  - Malaise [None]
  - Nausea [None]
  - Head discomfort [None]
  - Headache [None]
  - Eye pain [None]
  - Ocular discomfort [None]
  - Somnolence [None]
  - Dizziness [None]
  - Palpitations [None]
  - Inadequate analgesia [None]
  - Drug ineffective [None]
  - Product formulation issue [None]
  - Product complaint [None]

NARRATIVE: CASE EVENT DATE: 20220726
